FAERS Safety Report 14873981 (Version 1)
Quarter: 2018Q2

REPORT INFORMATION
  Report Type: Report from Study
  Country: DE (occurrence: DE)
  Receive Date: 20180510
  Receipt Date: 20180510
  Transmission Date: 20180711
  Serious: Yes (Hospitalization)
  Sender: FDA-Public Use
  Company Number: DE-CELGENEUS-DEU-20180409132

PATIENT
  Age: 59 Year
  Sex: Female
  Weight: 40 kg

DRUGS (1)
  1. ABRAXANE [Suspect]
     Active Substance: PACLITAXEL
     Indication: BREAST CANCER
     Route: 041
     Dates: start: 20180412, end: 20180419

REACTIONS (1)
  - Circulatory collapse [Not Recovered/Not Resolved]

NARRATIVE: CASE EVENT DATE: 20180422
